FAERS Safety Report 4958407-X (Version None)
Quarter: 2006Q1

REPORT INFORMATION
  Report Type: 
  Country: None (occurrence: None)
  Receive Date: 20060329
  Receipt Date: 20060329
  Transmission Date: 20060701
  Serious: Yes (Other)
  Sender: FDA-Public Use
  Company Number: None

PATIENT
  Age: 41 Year
  Sex: Female

DRUGS (6)
  1. ARICEPT [Suspect]
     Indication: DEMENTIA
     Dosage: SEE IMAGE
     Route: 048
     Dates: start: 20020123, end: 20051113
  2. ARICEPT [Suspect]
     Indication: TRISOMY 21
     Dosage: SEE IMAGE
     Route: 048
     Dates: start: 20020123, end: 20051113
  3. ARICEPT [Suspect]
     Indication: DEMENTIA
     Dosage: SEE IMAGE
     Route: 048
     Dates: start: 20051114
  4. ARICEPT [Suspect]
     Indication: TRISOMY 21
     Dosage: SEE IMAGE
     Route: 048
     Dates: start: 20051114
  5. VITAMIN E [Concomitant]
  6. LEVOTHYROXINE SODIUM [Concomitant]

REACTIONS (1)
  - CONVULSION [None]
